FAERS Safety Report 8854082 (Version 1)
Quarter: 2012Q4

REPORT INFORMATION
  Report Type: Spontaneous
  Country: US (occurrence: None)
  Receive Date: 20121019
  Receipt Date: 20121019
  Transmission Date: 20130627
  Serious: No
  Sender: FDA-Public Use
  Company Number: None

PATIENT
  Sex: Female
  Weight: 74.84 kg

DRUGS (2)
  1. ESCITALOPRAM [Concomitant]
     Indication: BIPOLAR DISORDER
     Route: 048
     Dates: start: 20120315, end: 20121001
  2. SYNTHROID [Concomitant]

REACTIONS (5)
  - Product substitution issue [None]
  - Fatigue [None]
  - Blood thyroid stimulating hormone decreased [None]
  - Serotonin syndrome [None]
  - Overdose [None]
